FAERS Safety Report 7239539-2 (Version None)
Quarter: 2011Q1

REPORT INFORMATION
  Report Type: 
  Country: None (occurrence: None)
  Receive Date: 20110121
  Receipt Date: 20100415
  Transmission Date: 20110831
  Serious: Yes (Other)
  Sender: FDA-Public Use
  Company Number: US-PFIZER INC-2010048613

PATIENT
  Sex: Female
  Weight: 86.168 kg

DRUGS (1)
  1. NIFEDIPINE [Suspect]
     Indication: HYPERTENSION
     Dosage: 90 MG, 1X/DAY
     Route: 048
     Dates: start: 19930101

REACTIONS (5)
  - NAUSEA [None]
  - THROAT TIGHTNESS [None]
  - DYSPNOEA [None]
  - COUGH [None]
  - INSOMNIA [None]
